FAERS Safety Report 21577616 (Version 4)
Quarter: 2024Q1

REPORT INFORMATION
  Report Type: Report from Study
  Country: BR (occurrence: BR)
  Receive Date: 20221110
  Receipt Date: 20240109
  Transmission Date: 20240410
  Serious: Yes (Other)
  Sender: FDA-Public Use
  Company Number: BR-TAKEDA-2022TUS083425

PATIENT
  Age: 61 Year
  Sex: Female

DRUGS (1)
  1. VEDOLIZUMAB [Suspect]
     Active Substance: VEDOLIZUMAB
     Indication: Colitis ulcerative
     Dosage: 300 MILLIGRAM
     Route: 042
     Dates: start: 20210329

REACTIONS (4)
  - Cataract [Recovering/Resolving]
  - Confusional state [Unknown]
  - Inappropriate schedule of product administration [Unknown]
  - Nervousness [Unknown]

NARRATIVE: CASE EVENT DATE: 20231218
